FAERS Safety Report 11493708 (Version 1)
Quarter: 2015Q3

REPORT INFORMATION
  Report Type: Spontaneous
  Country: GB (occurrence: None)
  Receive Date: 20150910
  Receipt Date: 20150910
  Transmission Date: 20151125
  Serious: No
  Sender: FDA-Public Use
  Company Number: None

PATIENT
  Age: 59 Month
  Sex: Female
  Weight: 63.5 kg

DRUGS (6)
  1. ZYRTEC [Suspect]
     Active Substance: CETIRIZINE HYDROCHLORIDE
     Indication: SEASONAL ALLERGY
     Dosage: DURATION: MORE THAN TEN YEARS?1  ONCE DAILY TAKEN BY MOUTH
     Route: 048
  2. ZYRTEC [Suspect]
     Active Substance: CETIRIZINE HYDROCHLORIDE
     Indication: HOUSE DUST ALLERGY
     Dosage: DURATION: MORE THAN TEN YEARS?1  ONCE DAILY TAKEN BY MOUTH
     Route: 048
  3. LYMECYCLINE [Concomitant]
     Active Substance: LYMECYCLINE
  4. OMEPRAZOLE. [Concomitant]
     Active Substance: OMEPRAZOLE
  5. MULTI VITAMIN SUPPLEMENTS [Concomitant]
  6. MOMETASONE [Concomitant]
     Active Substance: MOMETASONE

REACTIONS (2)
  - Drug withdrawal syndrome [None]
  - Pruritus generalised [None]
